FAERS Safety Report 21398820 (Version 1)
Quarter: 2022Q4

REPORT INFORMATION
  Report Type: Spontaneous
  Country: JP (occurrence: JP)
  Receive Date: 20221001
  Receipt Date: 20221001
  Transmission Date: 20230113
  Serious: Yes (Hospitalization)
  Sender: FDA-Public Use
  Company Number: JP-STRIDES ARCOLAB LIMITED-2022SP012504

PATIENT
  Age: 59 Year
  Sex: Male

DRUGS (6)
  1. ETOPOSIDE [Suspect]
     Active Substance: ETOPOSIDE
     Indication: Leukaemia basophilic
     Dosage: 100 MILLIGRAM/SQ. METER, RE-INDUCTION THERAPY
     Route: 065
  2. CYTARABINE [Suspect]
     Active Substance: CYTARABINE
     Indication: Leukaemia basophilic
     Dosage: 100 MILLIGRAM/SQ. METER, ON DAYS 1-7, INDUCTION THERAPY
     Route: 065
  3. CYTARABINE [Suspect]
     Active Substance: CYTARABINE
     Dosage: 1 GRAM PER SQUARE METRE,  IN RE-INDUCTION THERAPY
     Route: 065
  4. MITOXANTRONE [Suspect]
     Active Substance: MITOXANTRONE HYDROCHLORIDE
     Indication: Leukaemia basophilic
     Dosage: 8 MILLIGRAM/SQ. METER, RE-INDUCTION THERAPY
     Route: 065
  5. DAUNORUBICIN [Concomitant]
     Active Substance: DAUNORUBICIN
     Indication: Leukaemia basophilic
     Dosage: 50 MILLIGRAM/SQ. METER, ON DAYS 1-5, INDUCTION THERAPY
     Route: 065
  6. PREDNISOLONE [Concomitant]
     Active Substance: PREDNISOLONE
     Indication: Premedication
     Dosage: UNK
     Route: 065

REACTIONS (4)
  - Cognitive disorder [Unknown]
  - Tumour lysis syndrome [Unknown]
  - Inflammation [Unknown]
  - Off label use [Unknown]
